FAERS Safety Report 6818721-X (Version None)
Quarter: 2010Q3

REPORT INFORMATION
  Report Type: 
  Country: None (occurrence: None)
  Receive Date: 20100706
  Receipt Date: 20100622
  Transmission Date: 20110219
  Serious: Yes (Death)
  Sender: FDA-Public Use
  Company Number: US-ELI_LILLY_AND_COMPANY-US201006006208

PATIENT
  Sex: Female
  Weight: 95.238 kg

DRUGS (6)
  1. PROZAC [Suspect]
     Indication: DEPRESSION
     Dosage: 40 MG, 2/D
     Route: 048
     Dates: start: 20080506
  2. ACTIQ [Concomitant]
     Indication: ABDOMINAL PAIN
     Dosage: 800 UG, 2/D
     Route: 002
     Dates: start: 20061219
  3. MORPHINE SULFATE [Concomitant]
     Indication: ABDOMINAL PAIN
     Dosage: 15 MG, 2/D
     Route: 048
  4. REQUIP [Concomitant]
     Indication: RESTLESS LEGS SYNDROME
     Dosage: 1 MG, EACH EVENING
     Route: 048
     Dates: start: 20080605
  5. PHENERGAN [Concomitant]
     Indication: NAUSEA
     Dosage: 25 MG, 4/D
     Route: 048
     Dates: start: 20080409
  6. BACTRIM DS [Concomitant]
     Indication: URINARY TRACT INFECTION
     Route: 048
     Dates: start: 20080601

REACTIONS (6)
  - ABDOMINAL PAIN [None]
  - ACCIDENTAL OVERDOSE [None]
  - DRUG TOXICITY [None]
  - POTENTIATING DRUG INTERACTION [None]
  - PULMONARY CONGESTION [None]
  - PULMONARY OEDEMA [None]
